FAERS Safety Report 7512571-7 (Version None)
Quarter: 2011Q2

REPORT INFORMATION
  Report Type: 
  Country: None (occurrence: None)
  Receive Date: 20110531
  Receipt Date: 20110526
  Transmission Date: 20111010
  Serious: Yes (Death)
  Sender: FDA-Public Use
  Company Number: CO-ROCHE-779274

PATIENT
  Sex: Male

DRUGS (1)
  1. MYCOPHENOLIC ACID [Suspect]
     Route: 048
     Dates: start: 20100714, end: 20110420

REACTIONS (2)
  - INTRACRANIAL ANEURYSM [None]
  - DEATH [None]
